FAERS Safety Report 18378172 (Version 3)
Quarter: 2020Q4

REPORT INFORMATION
  Report Type: Report from Study
  Country: US (occurrence: US)
  Receive Date: 20201013
  Receipt Date: 20201112
  Transmission Date: 20210114
  Serious: Yes (Hospitalization, Other)
  Sender: FDA-Public Use
  Company Number: US-GILEAD-2020-0498146

PATIENT
  Age: 56 Year
  Sex: Female

DRUGS (44)
  1. AZITHROMYCIN ANHYDROUS. [Concomitant]
     Active Substance: AZITHROMYCIN ANHYDROUS
  2. BENZONATATE. [Concomitant]
     Active Substance: BENZONATATE
  3. LORATADINE. [Concomitant]
     Active Substance: LORATADINE
  4. MELATONIN [Concomitant]
     Active Substance: MELATONIN
  5. LEVALBUTEROL [LEVOSALBUTAMOL] [Concomitant]
     Active Substance: LEVALBUTEROL
  6. ENSURE [NUTRIENTS NOS] [Concomitant]
  7. XIFAXAN [Concomitant]
     Active Substance: RIFAXIMIN
  8. ZOLOFT [Concomitant]
     Active Substance: SERTRALINE HYDROCHLORIDE
  9. ADVAIR HFA [Concomitant]
     Active Substance: FLUTICASONE PROPIONATE\SALMETEROL XINAFOATE
  10. BETHKIS [Concomitant]
     Active Substance: TOBRAMYCIN
  11. CYCLOBENZAPRINE. [Concomitant]
     Active Substance: CYCLOBENZAPRINE
  12. CYANOCOBALAMIN. [Concomitant]
     Active Substance: CYANOCOBALAMIN
  13. MIRALAX [Concomitant]
     Active Substance: POLYETHYLENE GLYCOL 3350
  14. PROMETHAZINE [Concomitant]
     Active Substance: PROMETHAZINE HYDROCHLORIDE
  15. MUCINEX [Concomitant]
     Active Substance: GUAIFENESIN
  16. PANTOPRAZOLE [Concomitant]
     Active Substance: PANTOPRAZOLE
  17. TOPIRAMATE. [Concomitant]
     Active Substance: TOPIRAMATE
  18. VITAMIN D3 [Concomitant]
     Active Substance: CHOLECALCIFEROL
  19. ADVAIR HFA [Concomitant]
     Active Substance: FLUTICASONE PROPIONATE\SALMETEROL XINAFOATE
  20. URSODIOL. [Concomitant]
     Active Substance: URSODIOL
  21. ELIQUIS [Concomitant]
     Active Substance: APIXABAN
  22. METAXALONE. [Concomitant]
     Active Substance: METAXALONE
  23. KALYDECO [Concomitant]
     Active Substance: IVACAFTOR
  24. PANCREAZE [AMYLASE;LIPASE;PROTEASE NOS] [Concomitant]
  25. NYSTATIN. [Concomitant]
     Active Substance: NYSTATIN
  26. SEROQUEL [Concomitant]
     Active Substance: QUETIAPINE FUMARATE
  27. SERTRALINE [Concomitant]
     Active Substance: SERTRALINE HYDROCHLORIDE
  28. TOPAMAX [Concomitant]
     Active Substance: TOPIRAMATE
  29. TRAMADOL HCL [Concomitant]
     Active Substance: TRAMADOL HYDROCHLORIDE
  30. CARAFATE [Concomitant]
     Active Substance: SUCRALFATE
  31. FAMOTIDINE. [Concomitant]
     Active Substance: FAMOTIDINE
  32. VITAMIN D3 [Concomitant]
     Active Substance: CHOLECALCIFEROL
  33. AZTREONAM LYSINE [Suspect]
     Active Substance: AZTREONAM LYSINE
     Indication: CYSTIC FIBROSIS LUNG
     Dosage: 75 MG, TID, FOR 28 D ON AND 28 D OFF
     Route: 055
     Dates: start: 20131227
  34. CALCIUM + VIT D [Concomitant]
     Active Substance: CALCIUM\VITAMIN D
  35. FLONASE [Concomitant]
     Active Substance: FLUTICASONE PROPIONATE
  36. SALINEX [MACROGOL;PROPYLENE GLYCOL;SODIUM CHLORIDE] [Concomitant]
  37. APAP/CODEINE [CODEINE;PARACETAMOL] [Concomitant]
  38. SODIUM CHLORIDE. [Concomitant]
     Active Substance: SODIUM CHLORIDE
  39. ALPRAZOLAM. [Concomitant]
     Active Substance: ALPRAZOLAM
  40. BENTYL [Concomitant]
     Active Substance: DICYCLOMINE HYDROCHLORIDE
  41. ACETYLCYSTEINE. [Concomitant]
     Active Substance: ACETYLCYSTEINE
  42. GUAIFENESIN. [Concomitant]
     Active Substance: GUAIFENESIN
  43. LEVAQUIN [Concomitant]
     Active Substance: LEVOFLOXACIN
  44. CRESEMBA [Concomitant]
     Active Substance: ISAVUCONAZONIUM SULFATE

REACTIONS (3)
  - Oral discomfort [Unknown]
  - Intestinal obstruction [Unknown]
  - Pain in extremity [Not Recovered/Not Resolved]

NARRATIVE: CASE EVENT DATE: 20201003
